FAERS Safety Report 14334293 (Version 1)
Quarter: 2017Q4

REPORT INFORMATION
  Report Type: Spontaneous
  Country: US (occurrence: US)
  Receive Date: 20171228
  Receipt Date: 20171228
  Transmission Date: 20180321
  Serious: Yes (Other)
  Sender: FDA-Public Use
  Company Number: US-PFIZER INC-2017492205

PATIENT
  Age: 77 Year
  Sex: Female

DRUGS (2)
  1. ROBITUSSIN COUGH AND CHEST CONGESTION DM MAX [Suspect]
     Active Substance: DEXTROMETHORPHAN HYDROBROMIDE\GUAIFENESIN
     Indication: COUGH
     Dosage: 20 ML, EVERY 4 HRS
     Dates: start: 20171110, end: 20171114
  2. ROBITUSSIN COUGH AND CHEST CONGESTION DM MAX [Suspect]
     Active Substance: DEXTROMETHORPHAN HYDROBROMIDE\GUAIFENESIN
     Indication: PULMONARY CONGESTION

REACTIONS (2)
  - Choking [Recovered/Resolved]
  - Drug ineffective [Recovered/Resolved]

NARRATIVE: CASE EVENT DATE: 201711
